FAERS Safety Report 12719955 (Version 2)
Quarter: 2016Q3

REPORT INFORMATION
  Report Type: Spontaneous
  Country: US (occurrence: US)
  Receive Date: 20160907
  Receipt Date: 20160928
  Transmission Date: 20161109
  Serious: Yes (Other)
  Sender: FDA-Public Use
  Company Number: US-JNJFOC-20150810251

PATIENT
  Sex: Female
  Weight: 74.84 kg

DRUGS (4)
  1. LEVAQUIN [Suspect]
     Active Substance: LEVOFLOXACIN
     Indication: RESPIRATORY TRACT INFECTION
     Route: 048
     Dates: start: 20030915, end: 20030925
  2. LEVAQUIN [Suspect]
     Active Substance: LEVOFLOXACIN
     Indication: RESPIRATORY TRACT INFECTION
     Route: 048
     Dates: start: 200307
  3. AVELOX [Suspect]
     Active Substance: MOXIFLOXACIN HYDROCHLORIDE
     Indication: RESPIRATORY TRACT INFECTION
     Route: 048
     Dates: start: 20001127, end: 20001207
  4. AVELOX [Suspect]
     Active Substance: MOXIFLOXACIN HYDROCHLORIDE
     Indication: RESPIRATORY TRACT INFECTION
     Route: 048
     Dates: start: 20020522, end: 20020527

REACTIONS (5)
  - Amnesia [Unknown]
  - Depression [Unknown]
  - Sleep disorder [Unknown]
  - Gait disturbance [Unknown]
  - Neuropathy peripheral [Not Recovered/Not Resolved]

NARRATIVE: CASE EVENT DATE: 2003
